FAERS Safety Report 13331218 (Version 3)
Quarter: 2017Q2

REPORT INFORMATION
  Report Type: Spontaneous
  Country: US (occurrence: US)
  Receive Date: 20170314
  Receipt Date: 20170622
  Transmission Date: 20170830
  Serious: Yes (Hospitalization)
  Sender: FDA-Public Use
  Company Number: US-JNJFOC-20170312620

PATIENT
  Age: 51 Year
  Sex: Female
  Weight: 117.94 kg

DRUGS (11)
  1. ALBUTEROL. [Concomitant]
     Active Substance: ALBUTEROL
     Indication: MULTIPLE ALLERGIES
     Route: 065
     Dates: start: 201006
  2. XARELTO [Suspect]
     Active Substance: RIVAROXABAN
     Indication: PULMONARY EMBOLISM
     Route: 048
     Dates: start: 20170324
  3. XARELTO [Suspect]
     Active Substance: RIVAROXABAN
     Indication: DEEP VEIN THROMBOSIS
     Route: 048
     Dates: start: 20170324
  4. FLONASE [Concomitant]
     Active Substance: FLUTICASONE PROPIONATE
     Route: 065
     Dates: start: 201006
  5. XARELTO [Suspect]
     Active Substance: RIVAROXABAN
     Indication: PULMONARY EMBOLISM
     Dosage: AT 4:25 PM
     Route: 048
     Dates: start: 20170125, end: 20170303
  6. ATENOLOL. [Concomitant]
     Active Substance: ATENOLOL
     Indication: HYPERTENSION
     Route: 065
     Dates: start: 200810
  7. HYDROCHLOROTHIAZIDE. [Concomitant]
     Active Substance: HYDROCHLOROTHIAZIDE
     Indication: HYPERTENSION
     Route: 065
     Dates: start: 200810
  8. LOSARTAN. [Concomitant]
     Active Substance: LOSARTAN
     Indication: HYPERTENSION
     Route: 065
     Dates: start: 200810
  9. VITAMIN D2 [Concomitant]
     Active Substance: ERGOCALCIFEROL
     Route: 065
     Dates: start: 201508
  10. ALBUTEROL. [Concomitant]
     Active Substance: ALBUTEROL
     Indication: ASTHMA
     Route: 065
     Dates: start: 201006
  11. XARELTO [Suspect]
     Active Substance: RIVAROXABAN
     Indication: DEEP VEIN THROMBOSIS
     Dosage: AT 4:25 PM
     Route: 048
     Dates: start: 20170125, end: 20170303

REACTIONS (3)
  - Abasia [Recovering/Resolving]
  - Pain in extremity [Recovering/Resolving]
  - Uterine haemorrhage [Recovered/Resolved]

NARRATIVE: CASE EVENT DATE: 20170112
